FAERS Safety Report 20700965 (Version 1)
Quarter: 2022Q2

REPORT INFORMATION
  Report Type: Spontaneous
  Country: US (occurrence: US)
  Receive Date: 20220412
  Receipt Date: 20220412
  Transmission Date: 20220721
  Serious: No
  Sender: FDA-Public Use
  Company Number: US-ABBVIE-21K-163-4180484-00

PATIENT
  Sex: Female
  Weight: 102.60 kg

DRUGS (2)
  1. LUPRON [Suspect]
     Active Substance: LEUPROLIDE ACETATE
     Indication: Product used for unknown indication
     Route: 058
  2. IBRANCE [Suspect]
     Active Substance: PALBOCICLIB
     Indication: Breast cancer
     Dosage: PFIZER LABS, FOR 21 DAYS
     Route: 048
     Dates: start: 20210817

REACTIONS (6)
  - Fibromyalgia [Unknown]
  - Heart rate increased [Unknown]
  - Chest pain [Unknown]
  - Migraine [Unknown]
  - Pain [Unknown]
  - Nausea [Unknown]

NARRATIVE: CASE EVENT DATE: 20210101
